FAERS Safety Report 5268858-4 (Version None)
Quarter: 2007Q1

REPORT INFORMATION
  Report Type: 
  Country: None (occurrence: None)
  Receive Date: 20061212
  Receipt Date: 20050222
  Transmission Date: 20070707
  Serious: Yes (Hospitalization)
  Sender: FDA-Public Use
  Company Number: 2005UW02943

PATIENT
  Age: 63 Year
  Sex: Male

DRUGS (2)
  1. CASODEX [Suspect]
     Indication: PROSTATE CANCER
     Dosage: 50 MG PO
     Route: 048
  2. ZOLADEX [Concomitant]

REACTIONS (1)
  - RECTAL HAEMORRHAGE [None]
